FAERS Safety Report 25366380 (Version 2)
Quarter: 2025Q4

REPORT INFORMATION
  Report Type: Report from Study
  Country: BR (occurrence: BR)
  Receive Date: 20250528
  Receipt Date: 20251029
  Transmission Date: 20260118
  Serious: Yes (Other)
  Sender: JOHNSON AND JOHNSON
  Company Number: BR-JNJFOC-20250531864

PATIENT
  Age: 52 Year
  Sex: Female
  Weight: 108 kg

DRUGS (5)
  1. GOLIMUMAB [Suspect]
     Active Substance: GOLIMUMAB
     Indication: Ankylosing spondylitis
     Dosage: LAST APPLICATION WAS 02-OCT-2025
     Route: 058
  2. GOLIMUMAB [Suspect]
     Active Substance: GOLIMUMAB
  3. GOLIMUMAB [Suspect]
     Active Substance: GOLIMUMAB
  4. SIMPONI [Suspect]
     Active Substance: GOLIMUMAB
     Indication: Ankylosing spondylitis
     Route: 058
  5. SIMPONI [Suspect]
     Active Substance: GOLIMUMAB

REACTIONS (1)
  - Cervix carcinoma [Unknown]
